FAERS Safety Report 4394151-8 (Version None)
Quarter: 2004Q3

REPORT INFORMATION
  Report Type: 
  Country: None (occurrence: None)
  Receive Date: 20040706
  Receipt Date: 20040628
  Transmission Date: 20050211
  Serious: Yes (Death, Hospitalization)
  Sender: FDA-Public Use
  Company Number: 2004-06-2227

PATIENT
  Age: 54 Year
  Sex: Female

DRUGS (8)
  1. PEG-INTRON [Suspect]
     Indication: HEPATITIS C
     Dosage: SUBCUTANEOUS
     Route: 058
     Dates: start: 20040227
  2. REBETOL [Suspect]
     Indication: HEPATITIS C
     Dosage: ORAL
     Route: 048
     Dates: start: 20040227
  3. AMBIEN [Concomitant]
  4. DIOVAN [Concomitant]
  5. PROTONIX [Concomitant]
  6. QUININE SULFATE [Concomitant]
  7. SYNTHROID [Concomitant]
  8. EFFEXOR [Concomitant]

REACTIONS (2)
  - ABDOMINAL PAIN [None]
  - PLATELET COUNT DECREASED [None]
